FAERS Safety Report 10192916 (Version 1)
Quarter: 2014Q2

REPORT INFORMATION
  Report Type: Report from Study
  Country: US (occurrence: US)
  Receive Date: 20140523
  Receipt Date: 20140523
  Transmission Date: 20141212
  Serious: Yes (Other)
  Sender: FDA-Public Use
  Company Number: US-BAXTER-2014BAX026841

PATIENT
  Sex: 0

DRUGS (4)
  1. CYCLOPHOSPHAMIDE FOR INJECTION, USP [Suspect]
     Indication: PLASMA CELL MYELOMA
     Route: 048
  2. CYCLOPHOSPHAMIDE FOR INJECTION, USP [Suspect]
     Indication: ADJUVANT THERAPY
  3. PREDNISONE [Suspect]
     Indication: PLASMA CELL MYELOMA
     Route: 065
  4. PREDNISONE [Suspect]
     Indication: ADJUVANT THERAPY

REACTIONS (1)
  - Precursor T-lymphoblastic lymphoma/leukaemia recurrent [Unknown]
